FAERS Safety Report 4630052-5 (Version None)
Quarter: 2005Q2

REPORT INFORMATION
  Report Type: 
  Country: None (occurrence: None)
  Receive Date: 20050406
  Receipt Date: 20050321
  Transmission Date: 20051028
  Serious: No
  Sender: FDA-Public Use
  Company Number: 10693

PATIENT
  Age: 32 Year
  Sex: Female

DRUGS (1)
  1. MITOMYCIN [Suspect]

REACTIONS (2)
  - OEDEMA MOUTH [None]
  - OROPHARYNGEAL SWELLING [None]
